FAERS Safety Report 5264892-9 (Version None)
Quarter: 2007Q1

REPORT INFORMATION
  Report Type: 
  Country: None (occurrence: None)
  Receive Date: 20061117
  Receipt Date: 20060530
  Transmission Date: 20070707
  Serious: Yes (Other)
  Sender: FDA-Public Use
  Company Number: US-JNJFOC-20060502664

PATIENT
  Age: 48 Year
  Sex: Female
  Weight: 59.4212 kg

DRUGS (1)
  1. LEVAQUIN [Suspect]
     Indication: EAR INFECTION
     Dosage: 750 MG, 1 IN 1 DAY, ORAL
     Route: 048
     Dates: start: 20060414, end: 20060416

REACTIONS (7)
  - ARTHRITIS [None]
  - CONFUSIONAL STATE [None]
  - DEPRESSION [None]
  - DIZZINESS [None]
  - OEDEMA PERIPHERAL [None]
  - PALPITATIONS [None]
  - RESPIRATORY DISORDER [None]
